FAERS Safety Report 4908987-5 (Version None)
Quarter: 2006Q1

REPORT INFORMATION
  Report Type: 
  Country: None (occurrence: None)
  Receive Date: 20060210
  Receipt Date: 20060210
  Transmission Date: 20060701
  Serious: Yes (Other)
  Sender: FDA-Public Use
  Company Number: None

PATIENT
  Age: 41 Year
  Sex: Female
  Weight: 65.7716 kg

DRUGS (4)
  1. YASMIN [Suspect]
     Indication: CONTRACEPTION
     Dosage: 1 TABLET DAILY PO
     Route: 048
     Dates: start: 20050420, end: 20051220
  2. YASMIN [Suspect]
     Indication: OVARIAN CYST
     Dosage: 1 TABLET DAILY PO
     Route: 048
     Dates: start: 20050420, end: 20051220
  3. LEVOTHYROXINE SODIUM [Concomitant]
  4. ATENOLOL [Concomitant]

REACTIONS (6)
  - ANXIETY [None]
  - CHEST PAIN [None]
  - DEPRESSION [None]
  - PALPITATIONS [None]
  - PANIC ATTACK [None]
  - TACHYCARDIA [None]
